FAERS Safety Report 20369603 (Version 1)
Quarter: 2022Q1

REPORT INFORMATION
  Report Type: Report from Study
  Country: US (occurrence: US)
  Receive Date: 20220124
  Receipt Date: 20220124
  Transmission Date: 20220423
  Serious: Yes (Hospitalization)
  Sender: FDA-Public Use
  Company Number: US-ADAMAS PHARMA, LLC-2022ADA00095

PATIENT
  Age: 61 Year
  Sex: Female

DRUGS (6)
  1. GOCOVRI [Suspect]
     Active Substance: AMANTADINE
     Indication: Dyskinesia
     Dosage: 274 MG, 1X/DAY AT BEDTIME
     Route: 048
     Dates: start: 20200819
  2. CALCIUM / VITAMIN D [Concomitant]
  3. MULTIVITAMIN MINERALS [Concomitant]
  4. MULTIVITAMIN ADULTS [Concomitant]
  5. VITAMIN B COMPLEX / VITAMIN C [Concomitant]
  6. UNSPECIFIED LEVODOPA THERAPY [Concomitant]

REACTIONS (1)
  - Choking [Not Recovered/Not Resolved]

NARRATIVE: CASE EVENT DATE: 20220101
